FAERS Safety Report 5052815-7 (Version None)
Quarter: 2006Q3

REPORT INFORMATION
  Report Type: 
  Country: None (occurrence: None)
  Receive Date: 20060713
  Receipt Date: 20060713
  Transmission Date: 20061208
  Serious: No
  Sender: FDA-Public Use
  Company Number: None

PATIENT
  Age: 62 Year
  Sex: Female
  Weight: 75.7507 kg

DRUGS (5)
  1. AMBIEN CR [Suspect]
     Indication: INITIAL INSOMNIA
     Dosage: 12.5 MG TWICE A WEEK PO
     Route: 048
     Dates: start: 20060628, end: 20060629
  2. ZESTRIL [Concomitant]
  3. EVISTA [Concomitant]
  4. ATARAXM [Concomitant]
  5. AVANDIA [Concomitant]

REACTIONS (3)
  - AMNESIA [None]
  - INCOHERENT [None]
  - STUPOR [None]
